FAERS Safety Report 14169287 (Version 3)
Quarter: 2017Q4

REPORT INFORMATION
  Report Type: Report from Study
  Country: US (occurrence: US)
  Receive Date: 20171108
  Receipt Date: 20171228
  Transmission Date: 20180321
  Serious: Yes (Hospitalization, Disabling, Other)
  Sender: FDA-Public Use
  Company Number: PHHY2017US092057

PATIENT
  Age: 12 Year
  Sex: Female
  Weight: 30.7 kg

DRUGS (6)
  1. FLUTICASONE. [Concomitant]
     Active Substance: FLUTICASONE
     Indication: ALLERGIC SINUSITIS
  2. VITAMIN D [Concomitant]
     Active Substance: CHOLECALCIFEROL
     Indication: PANCREATIC FAILURE
     Dosage: 2000 IU, UNK
     Route: 065
     Dates: start: 20170602
  3. TOBI PODHALER [Suspect]
     Active Substance: TOBRAMYCIN
     Indication: PSEUDOMONAS INFECTION
     Dosage: 300 OT, BID
     Route: 055
     Dates: start: 20170617, end: 20170715
  4. FLUTICASONE. [Concomitant]
     Active Substance: FLUTICASONE
     Indication: RHINITIS ALLERGIC
     Dosage: 1 DF, BID
     Route: 065
     Dates: start: 20170602
  5. TOBI PODHALER [Suspect]
     Active Substance: TOBRAMYCIN
     Indication: CYSTIC FIBROSIS
     Dosage: 300 MG, BID
     Route: 055
     Dates: start: 20170602
  6. DRONABINOL. [Concomitant]
     Active Substance: DRONABINOL
     Indication: DECREASED APPETITE
     Dosage: 2.5 MG, BID
     Route: 065
     Dates: start: 20170509

REACTIONS (26)
  - Cystic fibrosis lung [Recovered/Resolved]
  - Infective pulmonary exacerbation of cystic fibrosis [Recovered/Resolved]
  - Full blood count increased [Unknown]
  - Pneumonia [Recovered/Resolved]
  - Sputum increased [Unknown]
  - Blood glucose increased [Unknown]
  - Bronchiectasis [Recovered/Resolved]
  - Blood sodium decreased [Unknown]
  - Condition aggravated [Recovered/Resolved]
  - Staphylococcal infection [Unknown]
  - Headache [Unknown]
  - Chest pain [Recovered/Resolved]
  - Haemoglobin decreased [Unknown]
  - Sinusitis [Unknown]
  - Blood calcium decreased [Unknown]
  - Nausea [Unknown]
  - Cough [Unknown]
  - Wheezing [Recovered/Resolved]
  - Pseudomonas infection [Unknown]
  - Dyspnoea [Unknown]
  - Chest discomfort [Not Recovered/Not Resolved]
  - Forced expiratory volume abnormal [Unknown]
  - Infective pulmonary exacerbation of cystic fibrosis [Not Recovered/Not Resolved]
  - Hypoxia [Not Recovered/Not Resolved]
  - Infective pulmonary exacerbation of cystic fibrosis [Recovered/Resolved]
  - Rash [Unknown]

NARRATIVE: CASE EVENT DATE: 20170602
